FAERS Safety Report 6473421 (Version 9)
Quarter: 2013Q4

REPORT INFORMATION
  Report Type: Report from Study
  Country: US (occurrence: US)
  Receive Date: 20071121
  Receipt Date: 20131213
  Transmission Date: 20140711
  Serious: Yes (Congenital Anomaly, Other)
  Sender: FDA-Public Use
  Company Number: US-GILEAD-2007-0014385

PATIENT
  Age: 31 Year
  Sex: Female

DRUGS (6)
  1. TRUVADA [Suspect]
     Indication: HIV INFECTION
     Dosage: 1 DF, QD
     Route: 048
     Dates: start: 20070827
  2. TRUVADA [Suspect]
     Dosage: 1 DF, QD
     Route: 048
     Dates: end: 20070817
  3. REYATAZ [Suspect]
     Indication: HIV INFECTION
     Dosage: 300 MG, QD
     Route: 048
     Dates: start: 20070827
  4. REYATAZ [Suspect]
     Dosage: 300 MG, QD
     Route: 048
     Dates: end: 20070817
  5. RITONAVIR [Suspect]
     Indication: HIV INFECTION
     Dosage: 100 MG, QD
     Route: 048
     Dates: start: 20070827
  6. RITONAVIR [Suspect]
     Dosage: 100 MG, QD
     Route: 048
     Dates: end: 20070817

REACTIONS (3)
  - Ultrasound antenatal screen abnormal [Recovered/Resolved]
  - Polyhydramnios [Recovered/Resolved]
  - Pregnancy [Recovered/Resolved]
